FAERS Safety Report 6911223-1 (Version None)
Quarter: 2010Q3

REPORT INFORMATION
  Report Type: 
  Country: None (occurrence: None)
  Receive Date: 20100806
  Receipt Date: 19980512
  Transmission Date: 20110219
  Serious: Yes (Hospitalization)
  Sender: FDA-Public Use
  Company Number: BE-CEPHALON-2010004049

PATIENT
  Sex: Male
  Weight: 92 kg

DRUGS (1)
  1. MODAFINIL [Suspect]
     Indication: NARCOLEPSY
     Route: 048
     Dates: start: 19960417, end: 19980505

REACTIONS (10)
  - ABDOMINAL DISCOMFORT [None]
  - DECREASED APPETITE [None]
  - DYSGEUSIA [None]
  - FAECES DISCOLOURED [None]
  - GALLBLADDER DISORDER [None]
  - GAMMA-GLUTAMYLTRANSFERASE INCREASED [None]
  - GASTROINTESTINAL DISORDER [None]
  - JAUNDICE [None]
  - TRANSAMINASES INCREASED [None]
  - URINE COLOUR ABNORMAL [None]
